FAERS Safety Report 17108560 (Version 1)
Quarter: 2019Q4

REPORT INFORMATION
  Report Type: Spontaneous
  Country: JP (occurrence: JP)
  Receive Date: 20191203
  Receipt Date: 20191203
  Transmission Date: 20200122
  Serious: Yes (Other)
  Sender: FDA-Public Use
  Company Number: JP-PFIZER INC-2019511958

PATIENT

DRUGS (3)
  1. CERCINE [Suspect]
     Active Substance: DIAZEPAM
     Dosage: UNK
     Route: 048
  2. LYRICA [Suspect]
     Active Substance: PREGABALIN
     Indication: NEUROPATHY PERIPHERAL
     Dosage: UNK
     Route: 048
  3. CALONAL [Suspect]
     Active Substance: ACETAMINOPHEN
     Indication: NEUROPATHY PERIPHERAL
     Dosage: UNK
     Route: 048

REACTIONS (5)
  - Monoplegia [Unknown]
  - Blood pressure increased [Unknown]
  - Muscular weakness [Unknown]
  - Intentional overdose [Unknown]
  - Depressed level of consciousness [Unknown]
